FAERS Safety Report 25215766 (Version 2)
Quarter: 2025Q2

REPORT INFORMATION
  Report Type: Report from Study
  Country: US (occurrence: US)
  Receive Date: 20250418
  Receipt Date: 20250505
  Transmission Date: 20250716
  Serious: Yes (Other)
  Sender: ABBVIE
  Company Number: US-ABBVIE-6232224

PATIENT
  Age: 34 Year
  Sex: Female

DRUGS (1)
  1. UBRELVY [Suspect]
     Active Substance: UBROGEPANT
     Indication: Migraine
     Route: 048
     Dates: start: 20230414

REACTIONS (3)
  - Blindness [Recovering/Resolving]
  - Ophthalmic migraine [Recovering/Resolving]
  - Aura [Recovering/Resolving]

NARRATIVE: CASE EVENT DATE: 20250414
